FAERS Safety Report 5518243-2 (Version None)
Quarter: 2007Q4

REPORT INFORMATION
  Report Type: 
  Country: None (occurrence: None)
  Receive Date: 20071115
  Receipt Date: 20071109
  Transmission Date: 20080405
  Serious: Yes (Hospitalization)
  Sender: FDA-Public Use
  Company Number: A0676057A

PATIENT
  Age: 40 Year
  Sex: Male

DRUGS (6)
  1. PARNATE [Suspect]
     Indication: DEPRESSION
     Route: 048
     Dates: start: 20060101, end: 20060101
  2. LUVOX [Concomitant]
  3. GLUCOPHAGE [Concomitant]
  4. CARDIZEM [Concomitant]
  5. LIPITOR [Concomitant]
  6. TRICOR [Concomitant]

REACTIONS (2)
  - AMNESIA [None]
  - SYNCOPE [None]
